FAERS Safety Report 19008499 (Version 2)
Quarter: 2021Q1

REPORT INFORMATION
  Report Type: Spontaneous
  Country: JP (occurrence: JP)
  Receive Date: 20210315
  Receipt Date: 20210323
  Transmission Date: 20210420
  Serious: Yes (Other)
  Sender: FDA-Public Use
  Company Number: JP-FRESENIUS KABI-FK202102338

PATIENT

DRUGS (1)
  1. ROCURONIUMBROMID KABI 10 MG/ML [Suspect]
     Active Substance: ROCURONIUM BROMIDE
     Indication: PRODUCT USED FOR UNKNOWN INDICATION
     Dosage: ROCURONIUM BROMIDE FK?AFTER THE DOSE OF ROCURONIUM BROMIDE FK WAS REDUCED, THE PATIENT (UNKNOWN AGE
     Route: 065

REACTIONS (2)
  - Bradycardia [Unknown]
  - Salivary hypersecretion [Unknown]
